FAERS Safety Report 21948059 (Version 1)
Quarter: 2023Q1

REPORT INFORMATION
  Report Type: Spontaneous
  Country: US (occurrence: US)
  Receive Date: 20230203
  Receipt Date: 20230203
  Transmission Date: 20230418
  Serious: Yes (Other)
  Sender: FDA-Public Use
  Company Number: US-JNJFOC-20230158132

PATIENT
  Age: 6 Decade
  Sex: Male
  Weight: 99.79 kg

DRUGS (3)
  1. XARELTO [Suspect]
     Active Substance: RIVAROXABAN
     Indication: Anticoagulant therapy
     Route: 048
     Dates: start: 2015, end: 202212
  2. LORBRENA [Suspect]
     Active Substance: LORLATINIB
     Indication: Lung neoplasm malignant
     Route: 065
     Dates: start: 202112
  3. LORBRENA [Suspect]
     Active Substance: LORLATINIB
     Dosage: 25 MG TABLET 3 TABLETS AT ONCE DAILY BY MOUTH
     Route: 048
     Dates: start: 202211

REACTIONS (6)
  - Lung neoplasm malignant [Not Recovered/Not Resolved]
  - Neuropathy peripheral [Unknown]
  - Arthritis [Recovered/Resolved]
  - Troponin increased [Recovered/Resolved]
  - Back pain [Recovering/Resolving]
  - Peripheral swelling [Unknown]

NARRATIVE: CASE EVENT DATE: 20150101
